FAERS Safety Report 12677482 (Version 2)
Quarter: 2016Q3

REPORT INFORMATION
  Report Type: Spontaneous
  Country: IT (occurrence: IT)
  Receive Date: 20160823
  Receipt Date: 20160916
  Transmission Date: 20161109
  Serious: Yes (Death)
  Sender: FDA-Public Use
  Company Number: IT-JNJFOC-20160815828

PATIENT
  Age: 61 Year
  Sex: Male

DRUGS (3)
  1. BACTRIM [Concomitant]
     Active Substance: SULFAMETHOXAZOLE\TRIMETHOPRIM
     Indication: ANTIFUNGAL PROPHYLAXIS
     Route: 048
     Dates: start: 20141101, end: 20160803
  2. IMBRUVICA [Suspect]
     Active Substance: IBRUTINIB
     Indication: CHRONIC LYMPHOCYTIC LEUKAEMIA
     Route: 048
     Dates: start: 20141103, end: 20160803
  3. IMBRUVICA [Suspect]
     Active Substance: IBRUTINIB
     Indication: CHRONIC LYMPHOCYTIC LEUKAEMIA
     Route: 048
     Dates: start: 201411

REACTIONS (4)
  - Disease progression [Fatal]
  - Pneumonia [Fatal]
  - Sepsis [Fatal]
  - Neutropenia [Fatal]

NARRATIVE: CASE EVENT DATE: 201509
